FAERS Safety Report 6539395-1 (Version None)
Quarter: 2010Q1

REPORT INFORMATION
  Report Type: 
  Country: None (occurrence: None)
  Receive Date: 20100111
  Receipt Date: 20091230
  Transmission Date: 20100710
  Serious: Yes (Other)
  Sender: FDA-Public Use
  Company Number: TRP_06417_2009

PATIENT
  Sex: Male
  Weight: 105.6881 kg

DRUGS (4)
  1. INFERGEN [Suspect]
     Indication: HEPATITIS C
     Dosage: 15 UG QD SUBCUTANEOUS, 9 UG QD
     Route: 058
     Dates: start: 20090601, end: 20090601
  2. INFERGEN [Suspect]
     Indication: HEPATITIS C
     Dosage: 15 UG QD SUBCUTANEOUS, 9 UG QD
     Route: 058
     Dates: start: 20090616
  3. RIBAPAK (NOT SPECIFIED) [Suspect]
     Indication: HEPATITIS C
     Dosage: 600 MG BID ORAL
     Route: 048
     Dates: start: 20090601
  4. PROCRIT /00909301/ [Concomitant]

REACTIONS (3)
  - ADVERSE EVENT [None]
  - NEUTROPHIL COUNT DECREASED [None]
  - WHITE BLOOD CELL COUNT DECREASED [None]
